FAERS Safety Report 9458583 (Version 2)
Quarter: 2013Q3

REPORT INFORMATION
  Report Type: Spontaneous
  Country: US (occurrence: None)
  Receive Date: 20130812
  Receipt Date: 20130912
  Transmission Date: 20140515
  Serious: Yes (Hospitalization, Other)
  Sender: FDA-Public Use
  Company Number: 2012US000963

PATIENT
  Age: 76 Year
  Sex: Male
  Weight: 95 kg

DRUGS (11)
  1. PONATINIB (AP24534) TABLET [Suspect]
     Indication: CHRONIC MYELOID LEUKAEMIA
     Route: 048
     Dates: start: 20121130, end: 20121213
  2. PROCARDIA (NIFEDIPINE) [Concomitant]
  3. VASOTEC (ENALAPRIL MALEATE) [Concomitant]
  4. BABY ASPIRIN (ACETYLSALICYLIC ACID) [Concomitant]
  5. VITAMIN C [Concomitant]
  6. VITAMIN E (TOCOPHERYL ACETATE) [Concomitant]
  7. CRESTOR (ROSUVASTATIN CALCIUM) [Concomitant]
  8. NEXIUM (ESOMEPRAZOLE MAGNESIUM) [Concomitant]
  9. ZETIA (EZETIMIBE) [Concomitant]
  10. NUVIGIL (ARMODAFINIL) [Concomitant]
  11. VITAMIN D(COLECALCIFEROL) [Concomitant]

REACTIONS (2)
  - Pneumonia aspiration [None]
  - Atrial fibrillation [None]
